FAERS Safety Report 14351020 (Version 1)
Quarter: 2018Q1

REPORT INFORMATION
  Report Type: Spontaneous
  Country: US (occurrence: US)
  Receive Date: 20180104
  Receipt Date: 20180104
  Transmission Date: 20180509
  Serious: No
  Sender: FDA-Public Use
  Company Number: US-DRREDDYS-USA/USA/16/0085493

PATIENT
  Age: 73 Year
  Sex: Female
  Weight: 58.51 kg

DRUGS (5)
  1. HABITROL [Suspect]
     Active Substance: NICOTINE
     Indication: SMOKING CESSATION THERAPY
     Route: 061
     Dates: start: 20160710
  2. ALBUTEROL INHALER [Concomitant]
     Active Substance: ALBUTEROL
     Indication: PRODUCT USED FOR UNKNOWN INDICATION
     Route: 065
  3. HABITROL [Suspect]
     Active Substance: NICOTINE
     Route: 065
  4. HABITROL [Suspect]
     Active Substance: NICOTINE
     Route: 061
  5. ADVAIR HFA [Concomitant]
     Active Substance: FLUTICASONE PROPIONATE\SALMETEROL XINAFOATE
     Indication: PRODUCT USED FOR UNKNOWN INDICATION
     Route: 065

REACTIONS (5)
  - Nicotine dependence [Unknown]
  - Incorrect drug administration duration [Unknown]
  - Overdose [Unknown]
  - Treatment noncompliance [Unknown]
  - Product quality issue [Unknown]

NARRATIVE: CASE EVENT DATE: 20160823
